FAERS Safety Report 9394543 (Version 1)
Quarter: 2013Q3

REPORT INFORMATION
  Report Type: Spontaneous
  Country: US (occurrence: None)
  Receive Date: 20130709
  Receipt Date: 20130709
  Transmission Date: 20140515
  Serious: Yes (Other)
  Sender: FDA-Public Use
  Company Number: None

PATIENT
  Age: 49 Year
  Sex: Male
  Weight: 83.92 kg

DRUGS (1)
  1. LEVOTHYROXINE [Suspect]

REACTIONS (5)
  - Palpitations [None]
  - Headache [None]
  - Chest pain [None]
  - Dyspnoea [None]
  - Heart rate irregular [None]
